FAERS Safety Report 8857469 (Version 3)
Quarter: 2013Q2

REPORT INFORMATION
  Report Type: Spontaneous
  Country: US (occurrence: US)
  Receive Date: 20121024
  Receipt Date: 20130513
  Transmission Date: 20140414
  Serious: Yes (Other)
  Sender: FDA-Public Use
  Company Number: US-ROCHE-774724

PATIENT
  Sex: Female
  Weight: 99.88 kg

DRUGS (4)
  1. ACCUTANE [Suspect]
     Indication: ACNE
     Route: 065
     Dates: start: 1994, end: 1995
  2. ACCUTANE [Suspect]
     Route: 065
     Dates: start: 1995, end: 1996
  3. ACCUTANE [Suspect]
     Route: 065
  4. AMNESTEEM [Suspect]
     Indication: ACNE
     Route: 065
     Dates: start: 200603, end: 200606

REACTIONS (7)
  - Crohn^s disease [Unknown]
  - Inflammatory bowel disease [Unknown]
  - Stress [Unknown]
  - Depression [Unknown]
  - Back pain [Unknown]
  - Anaemia [Unknown]
  - Irritable bowel syndrome [Unknown]
